FAERS Safety Report 5891307-X (Version None)
Quarter: 2008Q3

REPORT INFORMATION
  Report Type: 
  Country: None (occurrence: None)
  Receive Date: 20080922
  Receipt Date: 20080908
  Transmission Date: 20090109
  Serious: No
  Sender: FDA-Public Use
  Company Number: US-BAYER-200833234NA

PATIENT
  Sex: Female

DRUGS (2)
  1. YAZ [Suspect]
     Indication: CONTRACEPTION
     Route: 048
  2. DOXYCYCLINE [Concomitant]

REACTIONS (3)
  - HYPOMENORRHOEA [None]
  - MENSTRUAL DISORDER [None]
  - NIPPLE PAIN [None]
